FAERS Safety Report 22616274 (Version 2)
Quarter: 2023Q2

REPORT INFORMATION
  Report Type: Spontaneous
  Country: GB (occurrence: None)
  Receive Date: 20230619
  Receipt Date: 20230620
  Transmission Date: 20230721
  Serious: Yes (Hospitalization)
  Sender: FDA-Public Use
  Company Number: 2023A141571

PATIENT
  Age: 62 Year
  Sex: Male

DRUGS (13)
  1. OMEPRAZOLE [Suspect]
     Active Substance: OMEPRAZOLE
     Route: 048
     Dates: start: 20221129
  2. AMLODIPINE [Concomitant]
     Active Substance: AMLODIPINE BESYLATE
     Dates: start: 20221129
  3. AMOXICILLIN [Concomitant]
     Active Substance: AMOXICILLIN
     Dosage: ONE TO BE TAKEN THREE TIMES A DAY 21 CAPSULES
     Dates: start: 20221221
  4. ATENOLOL [Concomitant]
     Active Substance: ATENOLOL
     Dates: start: 20221129
  5. ATORVASTATIN [Concomitant]
     Active Substance: ATORVASTATIN
     Dates: start: 20221129
  6. DOXYCYCLINE [Concomitant]
     Active Substance: DOXYCYCLINE
     Dates: start: 20221220
  7. FUROSEMIDE [Concomitant]
     Active Substance: FUROSEMIDE
     Dates: start: 20220725
  8. IBUPROFEN [Concomitant]
     Active Substance: IBUPROFEN
  9. METFORMIN [Concomitant]
     Active Substance: METFORMIN HYDROCHLORIDE
     Dosage: 500 MG IN 1000 MG, ONE TO BE TAKEN TWICE A DAY MORNING AND NIGHT
     Dates: start: 20221129
  10. ACETAMINOPHEN [Concomitant]
     Active Substance: ACETAMINOPHEN
  11. PERINDOPRIL ERBUMINE [Concomitant]
     Active Substance: PERINDOPRIL ERBUMINE
     Dates: start: 20221129
  12. SILDENAFIL [Concomitant]
     Active Substance: SILDENAFIL
     Dosage: ONE TO BE TAKEN AS DIRECTED 32 TABLET - NOT FOR IP USE
     Dates: start: 20221220
  13. ULTRABASE [Concomitant]
     Dosage: APPLY 3-4 TIMES A DAY 500 ML PRN
     Dates: start: 20220725

REACTIONS (1)
  - Electrolyte imbalance [Recovered/Resolved]
